FAERS Safety Report 6666263-7 (Version None)
Quarter: 2010Q2

REPORT INFORMATION
  Report Type: 
  Country: None (occurrence: None)
  Receive Date: 20100402
  Receipt Date: 20100325
  Transmission Date: 20101027
  Serious: Yes (Other)
  Sender: FDA-Public Use
  Company Number: BR-JNJFOC-20100302805

PATIENT
  Age: 30 Year
  Sex: Male
  Weight: 100 kg

DRUGS (6)
  1. INVEGA [Suspect]
     Indication: ABNORMAL BEHAVIOUR
     Route: 048
  2. INVEGA [Suspect]
     Route: 048
  3. INVEGA [Suspect]
     Indication: AUTISM
     Route: 048
  4. INVEGA [Suspect]
     Route: 048
  5. TRILEPTAL [Concomitant]
     Indication: CONVULSION PROPHYLAXIS
  6. PHENOBARBITAL TAB [Concomitant]
     Indication: CONVULSION PROPHYLAXIS

REACTIONS (2)
  - OFF LABEL USE [None]
  - WEIGHT DECREASED [None]
